FAERS Safety Report 7701331-X (Version None)
Quarter: 2011Q3

REPORT INFORMATION
  Report Type: 
  Country: None (occurrence: None)
  Receive Date: 20110822
  Receipt Date: 20110811
  Transmission Date: 20111222
  Serious: Yes (Other)
  Sender: FDA-Public Use
  Company Number: JP-ELI_LILLY_AND_COMPANY-JP201108004709

PATIENT
  Age: 85 Year
  Sex: Female

DRUGS (1)
  1. ALIMTA [Suspect]
     Dosage: UNK
     Route: 042
     Dates: start: 20110811, end: 20110811

REACTIONS (1)
  - ANAPHYLACTIC SHOCK [None]
